FAERS Safety Report 5167584-X (Version None)
Quarter: 2006Q4

REPORT INFORMATION
  Report Type: 
  Country: None (occurrence: None)
  Receive Date: 20061207
  Receipt Date: 20061201
  Transmission Date: 20070319
  Serious: Yes (Other)
  Sender: FDA-Public Use
  Company Number: US-JNJFOC-20061200880

PATIENT
  Sex: Female
  Weight: 55.79 kg

DRUGS (10)
  1. INFLIXIMAB [Suspect]
     Indication: RHEUMATOID ARTHRITIS
     Route: 042
  2. METHOTREXATE [Concomitant]
  3. LEUCOVORIN CALCIUM [Concomitant]
  4. ZIAC [Concomitant]
     Dosage: DOSE=10/6.25 DAILY
  5. VITAMIN D [Concomitant]
  6. EFFEXOR [Concomitant]
  7. ASPIRIN [Concomitant]
  8. CALTRATE [Concomitant]
  9. CENTRUM SILVER [Concomitant]
  10. DARVOCET [Concomitant]

REACTIONS (1)
  - SKIN CANCER [None]
